FAERS Safety Report 8878595 (Version 1)
Quarter: 2012Q4

REPORT INFORMATION
  Report Type: 
  Country: US (occurrence: US)
  Receive Date: 20121025
  Receipt Date: 20121025
  Transmission Date: 20130627
  Serious: Yes (Other)
  Sender: FDA-Public Use
  Company Number: US-AMGEN-USASP2012021067

PATIENT
  Age: 52 Year
  Sex: Male

DRUGS (9)
  1. ENBREL [Suspect]
     Indication: PSORIATIC ARTHROPATHY
     Dosage: 50 mg, 2 times/wk
     Dates: start: 20090615
  2. ENBREL [Suspect]
     Indication: PSORIASIS
     Dosage: 50 mg, 2 times/wk
     Dates: start: 20090619, end: 20120401
  3. ENBREL [Suspect]
     Indication: PSORIASIS
  4. HUMIRA [Concomitant]
     Indication: PSORIASIS
     Dosage: UNK
     Dates: start: 2009
  5. HUMIRA [Concomitant]
     Indication: PSORIATIC ARTHROPATHY
  6. SIMPONI [Concomitant]
     Indication: PSORIASIS
     Dosage: UNK
     Dates: start: 2009
  7. SIMPONI [Concomitant]
     Indication: PSORIATIC ARTHROPATHY
  8. STELARA [Concomitant]
     Indication: PSORIASIS
     Dosage: UNK
     Dates: start: 2009
  9. STELARA [Concomitant]
     Indication: PSORIATIC ARTHROPATHY

REACTIONS (4)
  - Pneumonia [Not Recovered/Not Resolved]
  - Psoriatic arthropathy [Recovered/Resolved]
  - Psoriasis [Recovered/Resolved]
  - Upper respiratory tract infection [Recovered/Resolved]
